FAERS Safety Report 9178872 (Version 1)
Quarter: 2013Q1

REPORT INFORMATION
  Report Type: Spontaneous
  Country: JP (occurrence: JP)
  Receive Date: 20130321
  Receipt Date: 20130321
  Transmission Date: 20140127
  Serious: Yes (Other)
  Sender: FDA-Public Use
  Company Number: JP-B.I. PHARMACEUTICALS,INC./RIDGEFIELD-2013-BI-06531NB

PATIENT
  Age: 64 Year
  Sex: Male

DRUGS (1)
  1. TRAZENTA [Suspect]
     Indication: DIABETES MELLITUS
     Route: 065

REACTIONS (2)
  - Vascular graft [Unknown]
  - Heart rate increased [Recovered/Resolved]
